FAERS Safety Report 4579471-6 (Version None)
Quarter: 2005Q1

REPORT INFORMATION
  Report Type: 
  Country: None (occurrence: None)
  Receive Date: 20050209
  Receipt Date: 20050126
  Transmission Date: 20050727
  Serious: Yes (Hospitalization, Other)
  Sender: FDA-Public Use
  Company Number: DE_050115081

PATIENT
  Age: 62 Year
  Sex: Female

DRUGS (5)
  1. FORTEO [Suspect]
     Indication: OSTEOPOROSIS
     Dates: start: 20040101
  2. L-DOPA [Concomitant]
  3. CATECHOL-O-METHYL TRANSFERASE BLOCKER [Concomitant]
  4. AMANTADINE [Concomitant]
  5. REQUIP [Concomitant]

REACTIONS (3)
  - CONDITION AGGRAVATED [None]
  - LARYNGITIS [None]
  - STRIDOR [None]
